FAERS Safety Report 13402208 (Version 1)
Quarter: 2017Q2

REPORT INFORMATION
  Report Type: Spontaneous
  Country: JP (occurrence: JP)
  Receive Date: 20170404
  Receipt Date: 20170404
  Transmission Date: 20170830
  Serious: Yes (Other)
  Sender: FDA-Public Use
  Company Number: JP-JNJFOC-20170334683

PATIENT
  Sex: Male

DRUGS (10)
  1. TRAMCET [Suspect]
     Active Substance: ACETAMINOPHEN\TRAMADOL
     Indication: PRODUCT USED FOR UNKNOWN INDICATION
     Route: 048
  2. FAMOTIDINE. [Concomitant]
     Active Substance: FAMOTIDINE
     Route: 065
  3. UNISIA [Concomitant]
     Active Substance: AMLODIPINE BESYLATE\CANDESARTAN CILEXETIL
     Route: 048
  4. NAUZELIN [Concomitant]
     Active Substance: DOMPERIDONE
     Route: 065
  5. DEPAS [Concomitant]
     Active Substance: ETIZOLAM
     Route: 048
  6. LENDORMIN [Concomitant]
     Active Substance: BROTIZOLAM
     Route: 048
  7. ACOFIDE [Concomitant]
     Active Substance: ACOTIAMIDE HYDROCHLORIDE
     Route: 048
  8. TRAMCET [Suspect]
     Active Substance: ACETAMINOPHEN\TRAMADOL
     Indication: PRODUCT USED FOR UNKNOWN INDICATION
     Route: 048
     Dates: start: 2014
  9. TRAMCET [Suspect]
     Active Substance: ACETAMINOPHEN\TRAMADOL
     Indication: PRODUCT USED FOR UNKNOWN INDICATION
     Route: 048
     Dates: start: 20170328
  10. GASMOTIN [Concomitant]
     Active Substance: MOSAPRIDE CITRATE
     Route: 048

REACTIONS (6)
  - Dysgeusia [Recovering/Resolving]
  - Pruritus [Unknown]
  - Gastrooesophageal reflux disease [Unknown]
  - Gastric ulcer [Recovered/Resolved]
  - Sudden hearing loss [Unknown]
  - Somnolence [Unknown]

NARRATIVE: CASE EVENT DATE: 201703
